APPROVED DRUG PRODUCT: PROPRANOLOL HYDROCHLORIDE AND HYDROCHLOROTHIAZIDE
Active Ingredient: HYDROCHLOROTHIAZIDE; PROPRANOLOL HYDROCHLORIDE
Strength: 25MG;80MG
Dosage Form/Route: TABLET;ORAL
Application: A071501 | Product #001
Applicant: WATSON LABORATORIES INC
Approved: Dec 18, 1991 | RLD: No | RS: No | Type: DISCN